FAERS Safety Report 24143312 (Version 1)
Quarter: 2024Q3

REPORT INFORMATION
  Report Type: Spontaneous
  Country: CN (occurrence: CN)
  Receive Date: 20240726
  Receipt Date: 20240726
  Transmission Date: 20241016
  Serious: Yes (Hospitalization)
  Sender: ROCHE
  Company Number: CN-BoehringerIngelheim-2024-BI-041946

PATIENT
  Age: 72 Year
  Sex: Male
  Weight: 93.0 kg

DRUGS (1)
  1. ALTEPLASE [Suspect]
     Active Substance: ALTEPLASE
     Indication: Cerebral thrombosis
     Route: 042
     Dates: start: 20240722, end: 20240722

REACTIONS (3)
  - Dysphagia [Recovering/Resolving]
  - Tongue oedema [Recovering/Resolving]
  - Oxygen saturation decreased [Recovering/Resolving]

NARRATIVE: CASE EVENT DATE: 20240722
